FAERS Safety Report 6340683-2 (Version None)
Quarter: 2009Q3

REPORT INFORMATION
  Report Type: 
  Country: None (occurrence: None)
  Receive Date: 20090902
  Receipt Date: 20090902
  Transmission Date: 20100115
  Serious: Yes (Other)
  Sender: FDA-Public Use
  Company Number: None

PATIENT
  Age: 57 Year
  Sex: Female
  Weight: 128.368 kg

DRUGS (1)
  1. GEMFIBROZIL [Suspect]
     Indication: HYPERCHOLESTEROLAEMIA
     Dosage: 1 DAILY PO
     Route: 048
     Dates: start: 20061125, end: 20061210

REACTIONS (3)
  - ABASIA [None]
  - DYSSTASIA [None]
  - MYALGIA [None]
